FAERS Safety Report 13509485 (Version 1)
Quarter: 2017Q2

REPORT INFORMATION
  Report Type: Spontaneous
  Country: FR (occurrence: FR)
  Receive Date: 20170503
  Receipt Date: 20170503
  Transmission Date: 20170830
  Serious: Yes (Hospitalization)
  Sender: FDA-Public Use
  Company Number: PHHY2017FR061744

PATIENT
  Age: 64 Year
  Sex: Female

DRUGS (4)
  1. VANCOMYCIN SANDOZ [Suspect]
     Active Substance: VANCOMYCIN
     Dosage: 125 MG, BID
     Route: 042
     Dates: start: 20170402, end: 20170417
  2. VANCOMYCIN SANDOZ [Suspect]
     Active Substance: VANCOMYCIN
     Indication: ARTHRITIS
     Dosage: 1 G, UNK
     Route: 042
     Dates: start: 20170310
  3. VANCOMYCIN SANDOZ [Suspect]
     Active Substance: VANCOMYCIN
     Dosage: 200 MG, BID
     Route: 042
     Dates: start: 20170324, end: 20170330
  4. VANCOMYCIN SANDOZ [Suspect]
     Active Substance: VANCOMYCIN
     Dosage: 100 MG, BID
     Route: 042
     Dates: start: 20170330, end: 20170402

REACTIONS (2)
  - Overdose [Recovered/Resolved]
  - Acute kidney injury [Recovering/Resolving]

NARRATIVE: CASE EVENT DATE: 20170324
